FAERS Safety Report 6105605-8 (Version None)
Quarter: 2009Q1

REPORT INFORMATION
  Report Type: 
  Country: None (occurrence: None)
  Receive Date: 20090306
  Receipt Date: 20090224
  Transmission Date: 20090719
  Serious: Yes (Disabling, Other)
  Sender: FDA-Public Use
  Company Number: CA-ABBOTT-09P-028-0502293-00

PATIENT
  Sex: Female
  Weight: 77.18 kg

DRUGS (11)
  1. HUMIRA [Suspect]
     Indication: RHEUMATOID ARTHRITIS
     Route: 058
     Dates: start: 20060712, end: 20070101
  2. HUMIRA [Suspect]
     Dates: start: 20081006, end: 20081006
  3. PREDNISONE [Suspect]
     Indication: TEMPORAL ARTERITIS
     Dates: start: 20070401
  4. PREDNISONE [Suspect]
     Dates: start: 20080912
  5. CALCIUM [Concomitant]
     Indication: DRUG USE FOR UNKNOWN INDICATION
  6. ENTROPHEN [Concomitant]
     Indication: DRUG USE FOR UNKNOWN INDICATION
     Route: 048
  7. FOLIC ACID [Concomitant]
     Indication: DRUG USE FOR UNKNOWN INDICATION
  8. METHOTREXATE SODIUM [Concomitant]
     Indication: DRUG USE FOR UNKNOWN INDICATION
  9. LANSOPRAZOLE [Concomitant]
     Indication: DRUG USE FOR UNKNOWN INDICATION
     Route: 048
  10. SLOW-FE [Concomitant]
     Indication: DRUG USE FOR UNKNOWN INDICATION
     Route: 048
  11. LEVOTHYROXINE SODIUM [Concomitant]
     Indication: DRUG USE FOR UNKNOWN INDICATION
     Route: 048

REACTIONS (8)
  - ANOREXIA [None]
  - BLINDNESS UNILATERAL [None]
  - CONVULSION [None]
  - ENCEPHALITIS HERPES [None]
  - RHEUMATOID ARTHRITIS [None]
  - TEMPORAL ARTERITIS [None]
  - VISION BLURRED [None]
  - WEIGHT DECREASED [None]
